FAERS Safety Report 6215456-1 (Version None)
Quarter: 2009Q2

REPORT INFORMATION
  Report Type: 
  Country: None (occurrence: None)
  Receive Date: 20090603
  Receipt Date: 20090522
  Transmission Date: 20091009
  Serious: No
  Sender: FDA-Public Use
  Company Number: SPI200900167

PATIENT
  Age: 55 Year
  Sex: Female

DRUGS (2)
  1. AMITIZA [Suspect]
     Indication: IRRITABLE BOWEL SYNDROME
     Dosage: 24 MCG, TWICE DAILY, ORAL
     Route: 048
     Dates: start: 20090506, end: 20090501
  2. ANTIHYPERTENSIVES [Concomitant]

REACTIONS (3)
  - CHEST DISCOMFORT [None]
  - DYSPNOEA [None]
  - PALPITATIONS [None]
